FAERS Safety Report 4579291-2 (Version None)
Quarter: 2005Q1

REPORT INFORMATION
  Report Type: 
  Country: None (occurrence: None)
  Receive Date: 20050209
  Receipt Date: 20050125
  Transmission Date: 20050727
  Serious: Yes (Life-Threatening, Hospitalization, Other)
  Sender: FDA-Public Use
  Company Number: 211986

PATIENT
  Age: 54 Year
  Sex: Female
  Weight: 59 kg

DRUGS (18)
  1. RITUXIMAB (RITUXIMAB)CONC FOR SOLUTION FOR INFUSION [Suspect]
     Indication: RHEUMATOID ARTHRITIS
  2. METHYLPREDNISOLONE [Suspect]
  3. PREDNISONE [Suspect]
  4. ALBUTEROL (ALBUTEROL SULFATE,  ALBUTEROL) [Concomitant]
  5. PREVACID [Concomitant]
  6. FOSAMAX [Concomitant]
  7. CALTRATE (CALCIUM CARBONATE) [Concomitant]
  8. TUMS (CALCIUM CARBONATE) [Concomitant]
  9. MULTIVITAMIN (MULTIVITAMINS NOS) [Concomitant]
  10. ATENOLOL [Concomitant]
  11. METHOTREXATE [Concomitant]
  12. PREDNISONE [Concomitant]
  13. ADVIL [Concomitant]
  14. FOLIC ACID [Concomitant]
  15. VICODIN (HYDROCODONE BITARTRATE, ACETAMINOPHEN) [Concomitant]
  16. VICODIN [Concomitant]
  17. FLEXERIL [Concomitant]
  18. GLUCOPHAGE [Concomitant]

REACTIONS (13)
  - BACK PAIN [None]
  - BLOOD IMMUNOGLOBULIN M DECREASED [None]
  - CARDIAC FAILURE CONGESTIVE [None]
  - CHEST X-RAY ABNORMAL [None]
  - CLOSTRIDIAL INFECTION [None]
  - DISORIENTATION [None]
  - FLUID OVERLOAD [None]
  - MALAISE [None]
  - RESPIRATORY DISORDER [None]
  - SEPTIC SHOCK [None]
  - STAPHYLOCOCCAL INFECTION [None]
  - TREATMENT NONCOMPLIANCE [None]
  - VOMITING [None]
